FAERS Safety Report 15429434 (Version 1)
Quarter: 2018Q3

REPORT INFORMATION
  Report Type: Spontaneous
  Country: US (occurrence: US)
  Receive Date: 20180917
  Receipt Date: 20180917
  Transmission Date: 20181010
  Serious: No
  Sender: FDA-Public Use
  Company Number: None

PATIENT
  Age: 59 Year
  Sex: Female

DRUGS (4)
  1. COMPAZINE [Concomitant]
     Active Substance: PROCHLORPERAZINE MALEATE
  2. CAPECITABINE TAB 500MG [Suspect]
     Active Substance: CAPECITABINE
     Route: 048
     Dates: start: 20180714
  3. CALCIUM [Concomitant]
     Active Substance: CALCIUM
  4. VITAMIN D [Concomitant]
     Active Substance: CHOLECALCIFEROL

REACTIONS (2)
  - Arthralgia [None]
  - Skin exfoliation [None]

NARRATIVE: CASE EVENT DATE: 20180917
